FAERS Safety Report 6223653-4 (Version None)
Quarter: 2009Q2

REPORT INFORMATION
  Report Type: 
  Country: None (occurrence: None)
  Receive Date: 20090611
  Receipt Date: 20090306
  Transmission Date: 20091009
  Serious: No
  Sender: FDA-Public Use
  Company Number: US-ABBOTT-08P-163-0472435-00

PATIENT
  Sex: Female
  Weight: 127.12 kg

DRUGS (25)
  1. HUMIRA [Suspect]
     Indication: RHEUMATOID ARTHRITIS
     Dates: start: 20070123
  2. HUMULIN 70/30 [Concomitant]
     Indication: DIABETES MELLITUS
     Route: 050
  3. ACTOS [Concomitant]
     Indication: DIABETES MELLITUS
     Route: 048
  4. AVAPRO [Concomitant]
     Indication: BLOOD PRESSURE
  5. TOPROL-XL [Concomitant]
     Indication: BLOOD PRESSURE
  6. ZOCOR [Concomitant]
     Indication: BLOOD CHOLESTEROL
  7. CELEXA [Concomitant]
     Indication: DEPRESSION
  8. CLARITIN [Concomitant]
     Indication: URTICARIA
  9. CYCLOBENZAPRINE [Concomitant]
     Indication: MUSCLE RELAXANT THERAPY
  10. OMEPRAZOLE [Concomitant]
     Indication: DRUG USE FOR UNKNOWN INDICATION
  11. CALCIUM +D [Concomitant]
     Indication: DRUG USE FOR UNKNOWN INDICATION
  12. VITAMIN E [Concomitant]
     Indication: DRUG USE FOR UNKNOWN INDICATION
  13. ASPIRIN [Concomitant]
     Indication: DRUG USE FOR UNKNOWN INDICATION
  14. MULTI-VITAMIN [Concomitant]
     Indication: DRUG USE FOR UNKNOWN INDICATION
  15. NORVASC [Concomitant]
     Indication: BLOOD PRESSURE
  16. MOBIC [Concomitant]
     Indication: DRUG USE FOR UNKNOWN INDICATION
  17. BENADRYL [Concomitant]
     Indication: URTICARIA
  18. OXYCODONE HCL [Concomitant]
     Indication: BREAKTHROUGH PAIN
  19. OXYCODONE HCL EXTENDED-RELEASE [Concomitant]
     Indication: PAIN
  20. OXYCODONE HCL EXTENDED-RELEASE [Concomitant]
  21. COLACE [Concomitant]
     Indication: CONSTIPATION
  22. LASIX [Concomitant]
     Indication: DIURETIC THERAPY
  23. KLOR-CON ER [Concomitant]
     Indication: MINERAL SUPPLEMENTATION
  24. XANAX [Concomitant]
     Indication: ANXIETY
  25. DOCUSATE SODIUM W/SENNA [Concomitant]
     Indication: DRUG USE FOR UNKNOWN INDICATION
     Dosage: 50MG/8.6MG

REACTIONS (1)
  - INJECTION SITE PAIN [None]
